FAERS Safety Report 25019172 (Version 1)
Quarter: 2025Q1

REPORT INFORMATION
  Report Type: Spontaneous
  Country: IL (occurrence: IL)
  Receive Date: 20250227
  Receipt Date: 20250227
  Transmission Date: 20250409
  Serious: Yes (Hospitalization)
  Sender: EISAI
  Company Number: IL-Eisai-EC-2025-184851

PATIENT
  Age: 76 Year
  Sex: Male

DRUGS (1)
  1. LEQEMBI [Suspect]
     Active Substance: LECANEMAB-IRMB
     Indication: Product used for unknown indication
     Dates: start: 202412, end: 20250202

REACTIONS (2)
  - Myocardial ischaemia [Unknown]
  - Influenza [Unknown]

NARRATIVE: CASE EVENT DATE: 20250201
